FAERS Safety Report 10062013 (Version 1)
Quarter: 2014Q2

REPORT INFORMATION
  Report Type: Spontaneous
  Country: US (occurrence: None)
  Receive Date: 20140403
  Receipt Date: 20140403
  Transmission Date: 20141212
  Serious: Yes (Hospitalization)
  Sender: FDA-Public Use
  Company Number: UCM201403-000031

PATIENT
  Age: 39 Year
  Sex: Male

DRUGS (7)
  1. DIVALPROEX SODIUM [Suspect]
  2. TENOFOVIR [Suspect]
  3. EMTRICITABINE [Suspect]
  4. LOPINAVIR/RITONAVIR [Suspect]
  5. DAPSONE [Suspect]
  6. AZITHROMYCIN [Suspect]
  7. ETHAMBUTOL (ETHAMBUTOL) (ETHAMBUTOL) [Suspect]

REACTIONS (6)
  - Vanishing bile duct syndrome [None]
  - Multi-organ failure [None]
  - Pneumonia [None]
  - Haemodialysis [None]
  - Metabolic acidosis [None]
  - Azotaemia [None]
